FAERS Safety Report 20143489 (Version 2)
Quarter: 2022Q1

REPORT INFORMATION
  Report Type: Other
  Country: US (occurrence: None)
  Receive Date: 20211203
  Receipt Date: 20220126
  Transmission Date: 20220424
  Serious: Yes (Death, Hospitalization)
  Sender: FDA-Public Use
  Company Number: US-ROCHE-2963957

PATIENT
  Sex: Female

DRUGS (2)
  1. OCREVUS [Suspect]
     Active Substance: OCRELIZUMAB
     Indication: Multiple sclerosis
     Dosage: LAST OCREVUS INFUSION ON: 30/APR/2021
     Route: 065
     Dates: start: 20181109
  2. COVID-19 VACCINE [Concomitant]

REACTIONS (1)
  - COVID-19 [Fatal]
